FAERS Safety Report 19932465 (Version 3)
Quarter: 2023Q1

REPORT INFORMATION
  Report Type: Report from Study
  Country: US (occurrence: US)
  Receive Date: 20211008
  Receipt Date: 20230301
  Transmission Date: 20230418
  Serious: Yes (Hospitalization)
  Sender: FDA-Public Use
  Company Number: US-IPSEN BIOPHARMACEUTICALS, INC.-2021-19675

PATIENT
  Age: 63 Year
  Sex: Male
  Weight: 96.6 kg

DRUGS (10)
  1. SOMATULINE DEPOT [Suspect]
     Active Substance: LANREOTIDE ACETATE
     Indication: Small intestine carcinoma metastatic
     Dosage: 120MG/0.5ML
     Route: 058
     Dates: start: 20210528, end: 2021
  2. SOMATULINE DEPOT [Suspect]
     Active Substance: LANREOTIDE ACETATE
     Indication: Carcinoid tumour of the liver
     Dosage: 120MG/0.5ML
     Route: 058
     Dates: start: 202105
  3. SOMATULINE DEPOT [Suspect]
     Active Substance: LANREOTIDE ACETATE
     Indication: Neuroendocrine tumour
  4. SANDOSTATIN LAR DEPOT [Suspect]
     Active Substance: OCTREOTIDE ACETATE
     Indication: Carcinoid tumour
     Route: 058
     Dates: start: 20210820
  5. DEVICE\INSULIN NOS [Concomitant]
     Active Substance: DEVICE\INSULIN NOS
  6. BENZONATATE [Concomitant]
     Active Substance: BENZONATATE
  7. HUMALOG-U INSULIN [Concomitant]
     Dosage: 100 UNIT/ML
     Route: 058
  8. POLYETHYLENE GLYCOL [Concomitant]
     Active Substance: POLYETHYLENE GLYCOL
     Dosage: 400  (0.25% EYE DROPS)
     Route: 047
  9. CEFTRIAXONE [Concomitant]
     Active Substance: CEFTRIAXONE
     Route: 042
  10. FLAGYL [Concomitant]
     Active Substance: METRONIDAZOLE\METRONIDAZOLE HYDROCHLORIDE

REACTIONS (20)
  - Sepsis [Recovered/Resolved]
  - Sepsis [Recovered/Resolved]
  - Small intestinal obstruction [Recovered/Resolved]
  - Infection [Unknown]
  - Blood glucose abnormal [Recovering/Resolving]
  - Adverse event [Unknown]
  - Hypoglycaemia [Unknown]
  - Malaise [Recovering/Resolving]
  - Decreased appetite [Recovering/Resolving]
  - Diarrhoea [Recovering/Resolving]
  - Constipation [Recovering/Resolving]
  - Product availability issue [Unknown]
  - Off label use [Unknown]
  - Fatigue [Unknown]
  - Confusional state [Unknown]
  - Arthralgia [Unknown]
  - Weight increased [Unknown]
  - Dyspnoea [Unknown]
  - Malaise [Unknown]
  - Rotator cuff syndrome [Unknown]

NARRATIVE: CASE EVENT DATE: 20210101
